FAERS Safety Report 8535684-X (Version None)
Quarter: 2012Q3

REPORT INFORMATION
  Report Type: 
  Country: None (occurrence: None)
  Receive Date: 20120725
  Receipt Date: 20120718
  Transmission Date: 20120928
  Serious: No
  Sender: FDA-Public Use
  Company Number: US-PFIZER INC-2012174560

PATIENT
  Sex: Male
  Weight: 99.773 kg

DRUGS (8)
  1. VIAGRA [Suspect]
     Dosage: 100 MG, UNK
     Dates: start: 20120712
  2. ALLEGRA [Concomitant]
     Dosage: UNK
  3. ANASTROZOLE [Concomitant]
     Dosage: UNK
  4. TESTOSTERONE CIPIONATE [Concomitant]
     Dosage: UNK
  5. DIOVAN HCT [Concomitant]
     Dosage: UNK
  6. VIAGRA [Suspect]
     Indication: ERECTILE DYSFUNCTION
     Dosage: UNK
     Route: 048
  7. LEVOTHYROXINE [Concomitant]
     Dosage: UNK
  8. VITAMIN TAB [Concomitant]
     Dosage: UNK

REACTIONS (2)
  - DRUG INEFFECTIVE [None]
  - HOT FLUSH [None]
